FAERS Safety Report 19458839 (Version 1)
Quarter: 2021Q2

REPORT INFORMATION
  Report Type: Spontaneous
  Country: US (occurrence: US)
  Receive Date: 20210624
  Receipt Date: 20210624
  Transmission Date: 20210717
  Serious: Yes (Hospitalization, Other)
  Sender: FDA-Public Use
  Company Number: US-FRESENIUS KABI-FK202106353

PATIENT
  Age: 70 Year
  Sex: Male
  Weight: 90.9 kg

DRUGS (4)
  1. FLUOROURACIL (MANUFACTURER UNKNOWN) [Suspect]
     Active Substance: FLUOROURACIL
     Indication: CHOLANGIOCARCINOMA
     Route: 042
     Dates: start: 20210222, end: 20210524
  2. NIVOLUMAB [Suspect]
     Active Substance: NIVOLUMAB
     Indication: CHOLANGIOCARCINOMA
     Route: 042
     Dates: start: 20210222, end: 20210524
  3. IRINOTECAN [Suspect]
     Active Substance: IRINOTECAN
     Indication: CHOLANGIOCARCINOMA
     Dosage: NANOLIPOSOMAL IRINOTECAN
     Route: 042
     Dates: start: 20210222, end: 20210524
  4. FOLINIC ACID [Suspect]
     Active Substance: LEUCOVORIN
     Indication: CHOLANGIOCARCINOMA
     Route: 042
     Dates: start: 20210222, end: 20210524

REACTIONS (1)
  - Pneumonitis [Recovered/Resolved]

NARRATIVE: CASE EVENT DATE: 20210520
